FAERS Safety Report 6280061-8 (Version None)
Quarter: 2009Q3

REPORT INFORMATION
  Report Type: 
  Country: None (occurrence: None)
  Receive Date: 20090723
  Receipt Date: 20090713
  Transmission Date: 20100115
  Serious: Yes (Other)
  Sender: FDA-Public Use
  Company Number: US-ELI_LILLY_AND_COMPANY-US200601001290

PATIENT
  Sex: Female
  Weight: 90.703 kg

DRUGS (11)
  1. ZYPREXA [Suspect]
     Indication: SLEEP DISORDER
     Dosage: UNK, EACH EVENING
     Dates: start: 19960101
  2. ZYPREXA [Suspect]
     Dosage: 2.5 MG, UNK
     Dates: start: 20001130, end: 20030101
  3. PROZAC [Suspect]
     Dosage: 20 MG, UNK
     Dates: start: 19940101
  4. PROZAC [Suspect]
     Dosage: 30 MG, DAILY (1/D)
  5. PROZAC [Suspect]
     Dosage: 40 MG, UNK
     Dates: start: 19981218
  6. PROZAC [Suspect]
     Dosage: 50 MG, UNK
     Dates: start: 20010412
  7. PROZAC [Suspect]
     Dosage: 60 MG, EACH MORNING
     Dates: start: 20010815
  8. LITHIUM CARBONATE [Concomitant]
     Dosage: 450 MG, 2/D
  9. EFFEXOR [Concomitant]
     Dates: end: 20010815
  10. BUSPAR [Concomitant]
     Dosage: 15 MG, 2/D
     Dates: start: 20010815
  11. PAXIL [Concomitant]
     Dosage: 20 MG, DAILY (1/D)
     Dates: start: 20010926

REACTIONS (27)
  - ANAEMIA [None]
  - BLOOD UREA DECREASED [None]
  - CEREBROVASCULAR ACCIDENT [None]
  - CHEST PAIN [None]
  - DIABETES MELLITUS [None]
  - DIABETIC NEUROPATHY [None]
  - DRUG DOSE OMISSION [None]
  - DRUG INEFFECTIVE [None]
  - DRY MOUTH [None]
  - HAEMATURIA [None]
  - HEADACHE [None]
  - HYPERTENSION [None]
  - INTENTIONAL DRUG MISUSE [None]
  - INTENTIONAL OVERDOSE [None]
  - MEMORY IMPAIRMENT [None]
  - MONOCYTE COUNT INCREASED [None]
  - MYOCARDIAL INFARCTION [None]
  - NEUTROPHIL COUNT INCREASED [None]
  - OFF LABEL USE [None]
  - RENAL FAILURE [None]
  - RENOVASCULAR HYPERTENSION [None]
  - SOMNOLENCE [None]
  - SUICIDE ATTEMPT [None]
  - TYPE 2 DIABETES MELLITUS [None]
  - VISION BLURRED [None]
  - WEIGHT INCREASED [None]
  - WHITE BLOOD CELL COUNT INCREASED [None]
